FAERS Safety Report 5890228-6 (Version None)
Quarter: 2008Q3

REPORT INFORMATION
  Report Type: 
  Country: None (occurrence: None)
  Receive Date: 20080919
  Receipt Date: 20080908
  Transmission Date: 20090109
  Serious: Yes (Other)
  Sender: FDA-Public Use
  Company Number: US-PFIZER INC-2008076465

PATIENT
  Sex: Male
  Weight: 70.454 kg

DRUGS (5)
  1. CHANTIX [Suspect]
     Indication: SMOKING CESSATION THERAPY
     Dates: start: 20080828
  2. HALOPERIDOL [Concomitant]
     Indication: SCHIZOPHRENIA
  3. HALOPERIDOL [Concomitant]
     Indication: DEPRESSION
  4. CLONAZEPAM [Concomitant]
     Indication: SCHIZOPHRENIA
  5. CLONAZEPAM [Concomitant]
     Indication: DEPRESSION

REACTIONS (4)
  - AGGRESSION [None]
  - CONSTIPATION [None]
  - DEPRESSION [None]
  - WEIGHT DECREASED [None]
